FAERS Safety Report 14966494 (Version 1)
Quarter: 2018Q2

REPORT INFORMATION
  Report Type: Spontaneous
  Country: US (occurrence: US)
  Receive Date: 20180604
  Receipt Date: 20180604
  Transmission Date: 20180711
  Serious: Yes (Hospitalization, Other)
  Sender: FDA-Public Use
  Company Number: US-HETERO CORPORATE-HET2018US00477

PATIENT
  Age: 60 Year
  Sex: Male

DRUGS (1)
  1. ACYCLOVIR. [Suspect]
     Active Substance: ACYCLOVIR
     Indication: HERPES SIMPLEX
     Dosage: 400 MG
     Route: 048

REACTIONS (19)
  - Intentional overdose [Recovering/Resolving]
  - Purulence [None]
  - Haematocrit decreased [None]
  - PO2 decreased [None]
  - Neurotoxicity [Recovering/Resolving]
  - Genital discomfort [None]
  - Blood sodium decreased [None]
  - Disorientation [None]
  - Communication disorder [None]
  - Penile erythema [None]
  - Penile discharge [None]
  - Infection [None]
  - Haemoglobin decreased [None]
  - Mental status changes [Recovering/Resolving]
  - Confusional state [None]
  - Hypertension [None]
  - Blood glucose increased [None]
  - Prothrombin time prolonged [None]
  - Malignant hypertension [None]

NARRATIVE: CASE EVENT DATE: 20160322
